FAERS Safety Report 5190801-7 (Version None)
Quarter: 2006Q4

REPORT INFORMATION
  Report Type: 
  Country: None (occurrence: None)
  Receive Date: 20061215
  Receipt Date: 20061129
  Transmission Date: 20070319
  Serious: Yes (Other)
  Sender: FDA-Public Use
  Company Number: S06-DEN-05096-01

PATIENT
  Age: 56 Year
  Sex: Male

DRUGS (5)
  1. AKARIN (CITALOPRAM) [Suspect]
     Indication: DEPRESSION
     Dosage: 20 MG QD; PO
     Route: 048
     Dates: start: 20060101, end: 20060101
  2. AKARIN   (CITALOPRAM) [Suspect]
     Indication: DEPRESSION
     Dosage: 10 MG QD; PO
     Route: 048
     Dates: start: 20060101, end: 20060101
  3. REMERON [Concomitant]
  4. CLONAZEPAM [Concomitant]
  5. SIMVASTATIN [Concomitant]

REACTIONS (1)
  - NO ADVERSE DRUG EFFECT [None]
